FAERS Safety Report 5271943-4 (Version None)
Quarter: 2007Q1

REPORT INFORMATION
  Report Type: 
  Country: None (occurrence: None)
  Receive Date: 20061219
  Receipt Date: 20060919
  Transmission Date: 20070707
  Serious: Yes (Hospitalization, Other)
  Sender: FDA-Public Use
  Company Number: US-JNJFOC-20060105218

PATIENT
  Age: 40 Year
  Sex: Female
  Weight: 63.05 kg

DRUGS (7)
  1. ORTHO EVRA [Suspect]
     Indication: CONTRACEPTION
     Dosage: 1 DOSE(S), 3 IN 4 WEEK, TRANSDERMAL
     Route: 062
     Dates: start: 20021231, end: 20050502
  2. ELAVIL [Concomitant]
  3. PEGASYS (ANTIVIRALS FOR SYSTEMIC USE) [Concomitant]
  4. RIBAVIRIN [Concomitant]
  5. DURAGESIC-100 [Concomitant]
  6. ZYRTEC [Concomitant]
  7. ASPIRIN [Concomitant]

REACTIONS (4)
  - CERVICAL DYSPLASIA [None]
  - DEEP VEIN THROMBOSIS [None]
  - GASTRITIS [None]
  - LEUKOPENIA [None]
